FAERS Safety Report 18386123 (Version 1)
Quarter: 2020Q4

REPORT INFORMATION
  Report Type: Spontaneous
  Country: FR (occurrence: FR)
  Receive Date: 20201015
  Receipt Date: 20201015
  Transmission Date: 20210114
  Serious: Yes (Hospitalization)
  Sender: FDA-Public Use
  Company Number: FR-ACCORD-205228

PATIENT
  Age: 73 Year
  Sex: Female
  Weight: 97 kg

DRUGS (12)
  1. PYRIDOXINE [Concomitant]
     Active Substance: PYRIDOXINE
  2. THIAMINE. [Concomitant]
     Active Substance: THIAMINE
  3. MIANSERIN/MIANSERIN HYDROCHLORIDE [Concomitant]
     Active Substance: MIANSERIN\MIANSERIN HYDROCHLORIDE
  4. DIFFU K [Concomitant]
     Active Substance: POTASSIUM CHLORIDE
  5. HEPARIN [Concomitant]
     Active Substance: HEPARIN SODIUM
  6. CORTANCYL [Concomitant]
     Active Substance: PREDNISONE
  7. ALLOPURINOL. [Suspect]
     Active Substance: ALLOPURINOL
     Indication: PRODUCT USED FOR UNKNOWN INDICATION
     Route: 048
     Dates: end: 20200827
  8. TELMISARTAN. [Concomitant]
     Active Substance: TELMISARTAN
  9. TAVANIC [Suspect]
     Active Substance: LEVOFLOXACIN
     Indication: PRODUCT USED FOR UNKNOWN INDICATION
     Route: 048
     Dates: start: 20200904, end: 20200913
  10. HYPERIUM [Concomitant]
     Active Substance: RILMENIDINE PHOSPHATE
  11. LANSOPRAZOLE. [Concomitant]
     Active Substance: LANSOPRAZOLE
  12. DILTIAZEM/DILTIAZEM HYDROCHLORIDE/DILTIAZEM MALATE [Concomitant]
     Active Substance: DILTIAZEM

REACTIONS (3)
  - Alopecia areata [Not Recovered/Not Resolved]
  - Rash erythematous [Recovering/Resolving]
  - Skin exfoliation [Recovering/Resolving]

NARRATIVE: CASE EVENT DATE: 20200904
